FAERS Safety Report 5540891-4 (Version None)
Quarter: 2007Q4

REPORT INFORMATION
  Report Type: 
  Country: None (occurrence: None)
  Receive Date: 20071209
  Receipt Date: 20071203
  Transmission Date: 20080405
  Serious: Yes (Other)
  Sender: FDA-Public Use
  Company Number: US-ALLERGAN-0711559US

PATIENT
  Sex: Female

DRUGS (21)
  1. BOTOX [Suspect]
     Indication: TOURETTE'S DISORDER
     Dosage: 200 UNITS, SINGLE
     Route: 030
     Dates: start: 20070918, end: 20070918
  2. BOTOX [Suspect]
     Indication: MUSCLE CONTRACTIONS INVOLUNTARY
  3. BOTOX [Suspect]
     Indication: NECK PAIN
  4. BOTOX [Suspect]
     Indication: MUSCLE TIGHTNESS
  5. PROSCAR [Concomitant]
  6. PERAZINE [Concomitant]
  7. KLONOPIN [Concomitant]
  8. AMBIEN [Concomitant]
  9. HALOPERIDOL [Concomitant]
  10. DILANTIN [Concomitant]
  11. ZOFRAN [Concomitant]
  12. POTASSIUM CHLORIDE [Concomitant]
  13. EFFEXOR [Concomitant]
  14. REGLAN [Concomitant]
  15. ELAVIL [Concomitant]
  16. ADVAIR DISKUS 100/50 [Concomitant]
  17. AXERT [Concomitant]
  18. RELPAX [Concomitant]
  19. MS CONTIN [Concomitant]
  20. BETAMETHASONE [Concomitant]
  21. TOPROL-XL [Concomitant]

REACTIONS (11)
  - ABDOMINAL PAIN [None]
  - DIARRHOEA [None]
  - DYSPHAGIA [None]
  - DYSPHONIA [None]
  - HEADACHE [None]
  - HYPERHIDROSIS [None]
  - INCORRECT DOSE ADMINISTERED [None]
  - MUSCULAR WEAKNESS [None]
  - NAUSEA [None]
  - PHARYNGEAL OEDEMA [None]
  - SWOLLEN TONGUE [None]
